FAERS Safety Report 23329195 (Version 3)
Quarter: 2024Q1

REPORT INFORMATION
  Report Type: Spontaneous
  Country: JP (occurrence: JP)
  Receive Date: 20231222
  Receipt Date: 20240123
  Transmission Date: 20240410
  Serious: Yes (Hospitalization, Other)
  Sender: FDA-Public Use
  Company Number: JP-GLAXOSMITHKLINE-JP2023JPN176891

PATIENT

DRUGS (2)
  1. LAMICTAL [Suspect]
     Active Substance: LAMOTRIGINE
     Dosage: 1575 MG (63 TABLETS OF THE 25 MG TABLET)
  2. DIAZEPAM [Concomitant]
     Active Substance: DIAZEPAM
     Dosage: 12 MG (6 TABLETS OF THE 2 MG TABLET)

REACTIONS (4)
  - Toxicity to various agents [Unknown]
  - Depressed level of consciousness [Recovering/Resolving]
  - Suicide attempt [Unknown]
  - Intentional overdose [Unknown]
